FAERS Safety Report 18221471 (Version 2)
Quarter: 2020Q3

REPORT INFORMATION
  Report Type: Spontaneous
  Country: US (occurrence: US)
  Receive Date: 20200902
  Receipt Date: 20200910
  Transmission Date: 20201103
  Serious: No
  Sender: FDA-Public Use
  Company Number: US-PFIZER INC-2020338546

PATIENT
  Age: 30 Year
  Sex: Female

DRUGS (1)
  1. BOSULIF [Suspect]
     Active Substance: BOSUTINIB MONOHYDRATE
     Indication: MYELOID LEUKAEMIA
     Dosage: 500 MG
     Dates: end: 20200811

REACTIONS (2)
  - Contusion [Unknown]
  - Neoplasm progression [Unknown]
